FAERS Safety Report 15266510 (Version 3)
Quarter: 2019Q1

REPORT INFORMATION
  Report Type: Report from Study
  Country: US (occurrence: US)
  Receive Date: 20180810
  Receipt Date: 20190305
  Transmission Date: 20190417
  Serious: No
  Sender: FDA-Public Use
  Company Number: PHEH2018US032884

PATIENT
  Sex: Male
  Weight: 113.38 kg

DRUGS (1)
  1. GLATOPA [Suspect]
     Active Substance: GLATIRAMER ACETATE
     Indication: MULTIPLE SCLEROSIS
     Dosage: 40 MG, TIW (ROTATING SITES)
     Route: 058

REACTIONS (4)
  - Injection site pain [Unknown]
  - Chest discomfort [Unknown]
  - Pain [Unknown]
  - Muscle spasms [Recovered/Resolved]
